FAERS Safety Report 10273183 (Version 1)
Quarter: 2014Q1

REPORT INFORMATION
  Report Type: Spontaneous
  Country: US (occurrence: None)
  Receive Date: 20140306
  Receipt Date: 20140306
  Transmission Date: 20141002
  Serious: Yes (Hospitalization)
  Sender: FDA-Public Use
  Company Number: 163-21880-13081047

PATIENT
  Age: 58 Year
  Sex: Male
  Weight: 83 kg

DRUGS (10)
  1. REVLIMID [Suspect]
     Indication: PLASMA CELL MYELOMA
     Route: 048
     Dates: start: 201003
  2. PROCRIT (ERYTHROPOIETIN) (UNKNOWN) [Concomitant]
  3. CENTRUM (CENTRUM) (UNKNOWN) [Concomitant]
  4. ZOLINZA (VORINOSTAT) (UNKNOWN) [Concomitant]
  5. DEXAMETHASONE (DEXAMETHASONE) (UNKNOWN) [Concomitant]
  6. ASPIRIN LOW STRENGTH (ACETYLSALICYLIC ACID) (UNKNOWN) [Concomitant]
  7. LOTREL (LOTREL) (UNKNOWN) [Concomitant]
  8. COLCHICINE (COLCHICINE) (UNKNOWN) [Concomitant]
  9. ACYCLOVIR (ACICLOVIR) (UNKNOWN) [Concomitant]
  10. NEUPOGEN (FILGRASTIM) (UNKNOWN) [Concomitant]

REACTIONS (3)
  - Viral infection [None]
  - Haemoglobin decreased [None]
  - Haematocrit decreased [None]
